FAERS Safety Report 7737868-7 (Version None)
Quarter: 2011Q3

REPORT INFORMATION
  Report Type: 
  Country: None (occurrence: None)
  Receive Date: 20110908
  Receipt Date: 20110902
  Transmission Date: 20111222
  Serious: Yes (Hospitalization, Other)
  Sender: FDA-Public Use
  Company Number: PHFR2011GB01725

PATIENT
  Sex: Female

DRUGS (8)
  1. SIMVASTATIN [Suspect]
     Indication: BLOOD CHOLESTEROL INCREASED
     Dosage: 40 MG/DAY
     Route: 048
     Dates: start: 20100101, end: 20110228
  2. ACETYLSALICYLIC ACID SRT [Concomitant]
  3. AMISULPRIDE [Suspect]
     Dosage: 300 MG/DAY
     Route: 050
     Dates: start: 20030101, end: 20110228
  4. CLOZAPINE [Suspect]
     Dates: start: 20110401
  5. CLOZAPINE [Suspect]
     Indication: SCHIZOPHRENIA
     Dosage: 125 MG AM, 300 MG PM
     Route: 048
     Dates: start: 20010305
  6. AMISULPRIDE [Suspect]
     Route: 049
     Dates: start: 20110401
  7. LEVOTHYROXINE SODIUM [Concomitant]
     Indication: HYPOTHYROIDISM
     Dosage: 50 UG/DAY
     Route: 048
     Dates: start: 20100101
  8. CLOZAPINE [Suspect]
     Dosage: 425 MG/DAY
     Route: 048
     Dates: start: 20030101, end: 20110228

REACTIONS (9)
  - OVARIAN ADENOMA [None]
  - PNEUMONIA [None]
  - LIVER FUNCTION TEST ABNORMAL [None]
  - BLOOD BILIRUBIN INCREASED [None]
  - INTERNATIONAL NORMALISED RATIO INCREASED [None]
  - ALANINE AMINOTRANSFERASE INCREASED [None]
  - BLOOD ALKALINE PHOSPHATASE INCREASED [None]
  - HYPOTHYROIDISM [None]
  - HAEMOGLOBIN DECREASED [None]
